FAERS Safety Report 23099426 (Version 4)
Quarter: 2025Q4

REPORT INFORMATION
  Report Type: Report from Study
  Country: US (occurrence: None)
  Receive Date: 20231024
  Receipt Date: 20251118
  Transmission Date: 20260118
  Serious: Yes (Other)
  Sender: UCB
  Company Number: US-UCBSA-2023050790

PATIENT
  Age: 10 Year
  Weight: 41.2 kg

DRUGS (5)
  1. FENFLURAMINE [Suspect]
     Active Substance: FENFLURAMINE
     Indication: Lennox-Gastaut syndrome
     Dosage: 4 MILLILITER, 2X/DAY (BID)
  2. FENFLURAMINE [Suspect]
     Active Substance: FENFLURAMINE
     Indication: Epilepsy
     Dosage: 0.66 MILLIGRAM/KILOGRAM, ONCE DAILY (QD)
  3. FENFLURAMINE [Suspect]
     Active Substance: FENFLURAMINE
     Dosage: 17.6 MILLIGRAM/KILOGRAM, ONCE DAILY (QD)
  4. FENFLURAMINE [Suspect]
     Active Substance: FENFLURAMINE
     Dosage: 0.56 MILLIGRAM/KILOGRAM/DAY (TOTALLY 22 MILLIGRAM/ DAY)
  5. CANNABIDIOL [Concomitant]
     Active Substance: CANNABIDIOL
     Indication: Product used for unknown indication
     Dosage: 400 MILLIGRAM, 2X/DAY (BID)

REACTIONS (1)
  - Tricuspid valve incompetence [Not Recovered/Not Resolved]
